FAERS Safety Report 5320722-8 (Version None)
Quarter: 2007Q1

REPORT INFORMATION
  Report Type: 
  Country: None (occurrence: None)
  Receive Date: 20070220
  Receipt Date: 20061214
  Transmission Date: 20070707
  Serious: No
  Sender: FDA-Public Use
  Company Number: WAES 0612USA02602

PATIENT
  Age: 63 Year
  Sex: Male
  Weight: 97.977 kg

DRUGS (7)
  1. JANUVIA [Suspect]
     Indication: DIABETES MELLITUS
     Dosage: 100 MG/DAILY/PO
     Route: 048
     Dates: start: 20061122, end: 20060101
  2. JANUVIA [Suspect]
     Indication: DIABETES MELLITUS
     Dosage: 100 MG/DAILY/PO
     Route: 048
     Dates: start: 20060101, end: 20061212
  3. CARTIA XT [Concomitant]
  4. COREG [Concomitant]
  5. VYTORIN [Concomitant]
  6. METFORMIN HCL [Concomitant]
  7. QUINAPRIL HCL [Concomitant]

REACTIONS (2)
  - PALPITATIONS [None]
  - TACHYCARDIA [None]
